FAERS Safety Report 6420638-X (Version None)
Quarter: 2009Q4

REPORT INFORMATION
  Report Type: 
  Country: None (occurrence: None)
  Receive Date: 20091027
  Receipt Date: 20091016
  Transmission Date: 20100525
  Serious: No
  Sender: FDA-Public Use
  Company Number: 231769J09USA

PATIENT
  Age: 48 Year
  Sex: Female
  Weight: 80 kg

DRUGS (13)
  1. REBIF [Suspect]
     Indication: MULTIPLE SCLEROSIS
     Dosage: 44 MCG, 3 IN 1 WEEKS, SUBCUTANEOUS
     Route: 058
     Dates: start: 20090514, end: 20091002
  2. UNSPECIFIED OVER THE COUNTER MEDICATION (ALL OTHER THERAPEUTIC PRODUCT [Concomitant]
  3. BENADRYL (BENADRYL /01563701/) [Concomitant]
  4. PREVACID [Concomitant]
  5. LEXAPRO [Concomitant]
  6. LASIX (FUROSEMIDE /00032601/) [Concomitant]
  7. SYNTHROID [Concomitant]
  8. LOVASTATIN [Concomitant]
  9. SAVELLA (MILNACIPRAN) [Concomitant]
  10. VALIUM [Concomitant]
  11. VICOPROFEN [Concomitant]
  12. TRAZODONE HCL [Concomitant]
  13. VITAMIN D [Concomitant]

REACTIONS (1)
  - INFLUENZA LIKE ILLNESS [None]
